FAERS Safety Report 5564114-5 (Version None)
Quarter: 2007Q4

REPORT INFORMATION
  Report Type: 
  Country: None (occurrence: None)
  Receive Date: 20071217
  Receipt Date: 20071205
  Transmission Date: 20080405
  Serious: Yes (Other)
  Sender: FDA-Public Use
  Company Number: GB-PFIZER INC-2007094130

PATIENT
  Sex: Male
  Weight: 103.9 kg

DRUGS (1)
  1. CHAMPIX [Suspect]
     Route: 048
     Dates: start: 20071023, end: 20071023

REACTIONS (2)
  - FALL [None]
  - VERTIGO [None]
